FAERS Safety Report 23466911 (Version 1)
Quarter: 2024Q1

REPORT INFORMATION
  Report Type: Spontaneous
  Country: GB (occurrence: None)
  Receive Date: 20240201
  Receipt Date: 20240201
  Transmission Date: 20240410
  Serious: Yes (Other)
  Sender: FDA-Public Use
  Company Number: 2024A019263

PATIENT
  Age: 78 Year
  Sex: Male
  Weight: 81 kg

DRUGS (10)
  1. DAPAGLIFLOZIN [Suspect]
     Active Substance: DAPAGLIFLOZIN
     Dates: start: 20230310
  2. ATORVASTATIN [Concomitant]
     Active Substance: ATORVASTATIN
     Dosage: AT NIGHT TO LOWER CHOLESTEROL
     Dates: start: 20220316
  3. BENDROFLUMETHIAZIDE [Concomitant]
     Active Substance: BENDROFLUMETHIAZIDE
     Dosage: MORNING TO LOWER BLOOD PRESSURE
     Dates: start: 20220316
  4. BISOPROLOL [Concomitant]
     Active Substance: BISOPROLOL\BISOPROLOL FUMARATE
     Dates: start: 20230718
  5. EDOXABAN [Concomitant]
     Active Substance: EDOXABAN
     Dates: start: 20230718
  6. NITROGLYCERIN [Concomitant]
     Active Substance: NITROGLYCERIN
     Dosage: SPRAY 1 OR 2 SPRAYS UNDER THE TONGUE WHEN CHEST...
     Route: 060
     Dates: start: 20231114
  7. HYDROXOCOBALAMIN [Concomitant]
     Active Substance: HYDROXOCOBALAMIN
     Dosage: FOR 2 WEEKS
     Route: 030
     Dates: start: 20231027, end: 20231110
  8. METFORMIN [Concomitant]
     Active Substance: METFORMIN HYDROCHLORIDE
     Dates: start: 20220610
  9. OMEPRAZOLE [Concomitant]
     Active Substance: OMEPRAZOLE
     Dosage: MORNING
     Dates: start: 20220316
  10. TAMSULOSIN HYDROCHLORIDE [Concomitant]
     Active Substance: TAMSULOSIN HYDROCHLORIDE
     Dosage: FOR BLADDER SYMPTOMS
     Dates: start: 20231130, end: 20240104

REACTIONS (3)
  - Palpitations [Recovering/Resolving]
  - Angina pectoris [Unknown]
  - Atrial fibrillation [Unknown]
